FAERS Safety Report 8196184-2 (Version None)
Quarter: 2012Q1

REPORT INFORMATION
  Report Type: 
  Country: None (occurrence: None)
  Receive Date: 20120309
  Receipt Date: 20120227
  Transmission Date: 20120608
  Serious: Yes (Other)
  Sender: FDA-Public Use
  Company Number: DE-BAYER-2012-003473

PATIENT
  Age: 37 Year
  Sex: Female
  Weight: 66 kg

DRUGS (1)
  1. MIRENA [Suspect]
     Dosage: 20 MCG/24HR, CONT
     Route: 015
     Dates: start: 20111206, end: 20120112

REACTIONS (30)
  - HEART RATE INCREASED [None]
  - BACK PAIN [None]
  - HOT FLUSH [None]
  - SPEECH DISORDER [None]
  - WEIGHT INCREASED [None]
  - SEBORRHOEA [None]
  - MOOD ALTERED [None]
  - PARAESTHESIA [None]
  - HIRSUTISM [None]
  - HYPERHIDROSIS [None]
  - DARK CIRCLES UNDER EYES [None]
  - SENSATION OF PRESSURE [None]
  - PAIN IN EXTREMITY [None]
  - DIPLOPIA [None]
  - VAGINAL HAEMORRHAGE [None]
  - DECREASED APPETITE [None]
  - RESPIRATORY DISORDER [None]
  - BREAST DISCOMFORT [None]
  - HEADACHE [None]
  - MIGRAINE [None]
  - MAMMOPLASTY [None]
  - ABDOMINAL PAIN LOWER [None]
  - FEELING COLD [None]
  - SENSORY DISTURBANCE [None]
  - IRRITABILITY [None]
  - ACNE [None]
  - OVARIAN CYST RUPTURED [None]
  - HYPOAESTHESIA [None]
  - ABDOMINAL DISTENSION [None]
  - PALLOR [None]
